FAERS Safety Report 15719771 (Version 2)
Quarter: 2018Q4

REPORT INFORMATION
  Report Type: Report from Study
  Country: None (occurrence: JP)
  Receive Date: 20181213
  Receipt Date: 20181231
  Transmission Date: 20190205
  Serious: Yes (Hospitalization)
  Sender: FDA-Public Use
  Company Number: JP-ABBVIE-18K-087-2588877-00

PATIENT
  Age: 76 Year
  Sex: Female
  Weight: 47.8 kg

DRUGS (14)
  1. MAVIRET [Suspect]
     Active Substance: GLECAPREVIR\PIBRENTASVIR
     Indication: CHRONIC HEPATITIS C
  2. AMLODIPINE BESILATE [Concomitant]
     Active Substance: AMLODIPINE BESYLATE
     Route: 048
     Dates: start: 20180619
  3. BETAMETHASONE SODIUM PHOSPHATE [Concomitant]
     Active Substance: BETAMETHASONE SODIUM PHOSPHATE
     Indication: PRODUCT USED FOR UNKNOWN INDICATION
     Dates: start: 20180803, end: 20180823
  4. FLUOROMETHOLONE. [Concomitant]
     Active Substance: FLUOROMETHOLONE
     Indication: PRODUCT USED FOR UNKNOWN INDICATION
     Route: 047
     Dates: start: 20180824, end: 20181002
  5. MAVIRET [Suspect]
     Active Substance: GLECAPREVIR\PIBRENTASVIR
     Indication: HEPATIC CIRRHOSIS
  6. AMLODIPINE BESILATE [Concomitant]
     Active Substance: AMLODIPINE BESYLATE
     Indication: PRODUCT USED FOR UNKNOWN INDICATION
     Route: 048
     Dates: end: 20180611
  7. VALSARTAN. [Concomitant]
     Active Substance: VALSARTAN
     Indication: PRODUCT USED FOR UNKNOWN INDICATION
     Route: 048
     Dates: end: 20180611
  8. GLIMEPIRIDE. [Concomitant]
     Active Substance: GLIMEPIRIDE
     Indication: PRODUCT USED FOR UNKNOWN INDICATION
     Route: 048
     Dates: end: 20180611
  9. GLIMEPIRIDE. [Concomitant]
     Active Substance: GLIMEPIRIDE
     Route: 048
     Dates: start: 20180613
  10. MAVIRET [Suspect]
     Active Substance: GLECAPREVIR\PIBRENTASVIR
     Indication: CHRONIC HEPATITIS C
     Route: 048
     Dates: start: 20180319
  11. SITAGLIPTIN PHOSPHATE HYDRATE [Concomitant]
     Active Substance: SITAGLIPTIN PHOSPHATE
     Indication: PRODUCT USED FOR UNKNOWN INDICATION
     Route: 048
     Dates: end: 20180611
  12. SITAGLIPTIN PHOSPHATE HYDRATE [Concomitant]
     Active Substance: SITAGLIPTIN PHOSPHATE
     Route: 048
     Dates: start: 20180613
  13. VALSARTAN. [Concomitant]
     Active Substance: VALSARTAN
     Route: 048
     Dates: start: 20180619
  14. MOXIFLOXACIN HYDROCHLORIDE. [Concomitant]
     Active Substance: MOXIFLOXACIN HYDROCHLORIDE
     Indication: PRODUCT USED FOR UNKNOWN INDICATION
     Route: 047
     Dates: start: 20180729, end: 20180809

REACTIONS (3)
  - Cataract [Recovered/Resolved]
  - Cataract [Recovered/Resolved]
  - Hepatocellular carcinoma [Recovered/Resolved]

NARRATIVE: CASE EVENT DATE: 20180528
